FAERS Safety Report 21150670 (Version 2)
Quarter: 2022Q3

REPORT INFORMATION
  Report Type: Report from Study
  Country: ES (occurrence: ES)
  Receive Date: 20220729
  Receipt Date: 20220809
  Transmission Date: 20221027
  Serious: No
  Sender: FDA-Public Use
  Company Number: ES-ROCHE-3095363

PATIENT
  Age: 79 Year
  Sex: Male
  Weight: 62.4 kg

DRUGS (12)
  1. CARBOPLATIN [Suspect]
     Active Substance: CARBOPLATIN
     Indication: Small cell lung cancer extensive stage
     Dosage: 500 MG
     Route: 065
     Dates: start: 20211227
  2. ETOPOSIDE [Suspect]
     Active Substance: ETOPOSIDE
     Indication: Small cell lung cancer extensive stage
     Dosage: 172 MG
     Route: 042
     Dates: start: 20211227
  3. ATEZOLIZUMAB [Suspect]
     Active Substance: ATEZOLIZUMAB
     Indication: Small cell lung cancer extensive stage
     Dosage: 1200 MG
     Route: 041
     Dates: start: 20211227
  4. LORMETAZEPAM [Concomitant]
     Active Substance: LORMETAZEPAM
     Dosage: UNK, 1X/DAY
  5. IRON [Concomitant]
     Active Substance: IRON
     Route: 048
  6. ACETAMINOPHEN\CODEINE PHOSPHATE [Concomitant]
     Active Substance: ACETAMINOPHEN\CODEINE PHOSPHATE
  7. SIMVASTATIN [Concomitant]
     Active Substance: SIMVASTATIN
     Dosage: UNK, 1X/DAY
  8. SYMBICORT [Concomitant]
     Active Substance: BUDESONIDE\FORMOTEROL FUMARATE DIHYDRATE
  9. METFORMIN [Concomitant]
     Active Substance: METFORMIN HYDROCHLORIDE
     Dosage: UNK
     Dates: start: 20220511
  10. HIBOR [Concomitant]
  11. SERENOA REPENS WHOLE [Concomitant]
     Active Substance: SERENOA REPENS WHOLE
  12. MEGESTROL [Concomitant]
     Active Substance: MEGESTROL

REACTIONS (1)
  - Anaemia [Recovered/Resolved]

NARRATIVE: CASE EVENT DATE: 20220324
